FAERS Safety Report 7673663-5 (Version None)
Quarter: 2011Q3

REPORT INFORMATION
  Report Type: 
  Country: None (occurrence: None)
  Receive Date: 20110810
  Receipt Date: 20110801
  Transmission Date: 20111222
  Serious: Yes (Hospitalization)
  Sender: FDA-Public Use
  Company Number: US-US-EMD SERONO, INC.-7074542

PATIENT
  Sex: Female

DRUGS (2)
  1. REBIF [Suspect]
     Indication: MULTIPLE SCLEROSIS
     Dates: start: 20090205, end: 20101001
  2. UNSPECIFIED MEDICATIONS [Concomitant]

REACTIONS (2)
  - OVARIAN CANCER STAGE IV [None]
  - PLEURAL EFFUSION [None]
